FAERS Safety Report 9098575 (Version 1)
Quarter: 2013Q1

REPORT INFORMATION
  Report Type: Spontaneous
  Country: US (occurrence: US)
  Receive Date: 20130213
  Receipt Date: 20130213
  Transmission Date: 20140127
  Serious: Yes (Death, Other)
  Sender: FDA-Public Use
  Company Number: US-ELI_LILLY_AND_COMPANY-US201302001667

PATIENT
  Age: 61 Year
  Sex: Female

DRUGS (4)
  1. FLUOXETINE HYDROCHLORIDE [Suspect]
  2. ETHANOL [Concomitant]
  3. DIPHENHYDRAMINE [Concomitant]
  4. CYCLOBENZAPRINE [Concomitant]

REACTIONS (1)
  - Drug abuse [Fatal]
